FAERS Safety Report 23775085 (Version 1)
Quarter: 2024Q2

REPORT INFORMATION
  Report Type: Report from Study
  Country: BE (occurrence: BE)
  Receive Date: 20240423
  Receipt Date: 20240423
  Transmission Date: 20240716
  Serious: Yes (Other)
  Sender: FDA-Public Use
  Company Number: BE-JNJFOC-20240408696

PATIENT
  Age: 3 Decade
  Sex: Female
  Weight: 86 kg

DRUGS (12)
  1. AZITHROMYCIN [Suspect]
     Active Substance: AZITHROMYCIN
     Dosage: UNK
     Route: 065
  2. SELEXIPAG [Suspect]
     Active Substance: SELEXIPAG
     Indication: Pulmonary arterial hypertension
     Dosage: 1200 UG
     Route: 048
     Dates: start: 20221004, end: 20221018
  3. SELEXIPAG [Suspect]
     Active Substance: SELEXIPAG
     Dosage: 400 UG
     Route: 048
     Dates: start: 20220919, end: 20220926
  4. SELEXIPAG [Suspect]
     Active Substance: SELEXIPAG
     Dosage: 2800 UG
     Route: 048
     Dates: start: 20230418
  5. SELEXIPAG [Suspect]
     Active Substance: SELEXIPAG
     Dosage: 1600 UG
     Route: 048
     Dates: start: 20221018, end: 20221025
  6. SELEXIPAG [Suspect]
     Active Substance: SELEXIPAG
     Dosage: 800 UG
     Route: 048
     Dates: start: 20220926, end: 20221004
  7. SELEXIPAG [Suspect]
     Active Substance: SELEXIPAG
     Dosage: 3200 UG
     Route: 048
     Dates: start: 20221122, end: 20230418
  8. SELEXIPAG [Suspect]
     Active Substance: SELEXIPAG
     Dosage: 2400 UG
     Route: 048
     Dates: start: 20221102, end: 20221115
  9. SELEXIPAG [Suspect]
     Active Substance: SELEXIPAG
     Dosage: 2800 UG
     Route: 048
     Dates: start: 20221115, end: 20221122
  10. SELEXIPAG [Suspect]
     Active Substance: SELEXIPAG
     Dosage: 2000 UG
     Route: 048
     Dates: start: 20221025, end: 20221102
  11. MACITENTAN [Suspect]
     Active Substance: MACITENTAN
     Indication: Pulmonary arterial hypertension
     Dosage: 10 MG
     Route: 048
     Dates: start: 20191228
  12. TADALAFIL [Concomitant]
     Active Substance: TADALAFIL
     Indication: Pulmonary arterial hypertension
     Dosage: 40 UG
     Route: 048
     Dates: start: 20200214

REACTIONS (15)
  - Leukopenia [Unknown]
  - Thrombocytopenia [Unknown]
  - Contusion [Unknown]
  - Abdominal pain [Not Recovered/Not Resolved]
  - Fatigue [Not Recovered/Not Resolved]
  - Rash pruritic [Unknown]
  - Night sweats [Not Recovered/Not Resolved]
  - Ecchymosis [Recovered/Resolved]
  - Dyspnoea [Not Recovered/Not Resolved]
  - Pruritus [Not Recovered/Not Resolved]
  - Tonsillitis [Not Recovered/Not Resolved]
  - Respiratory tract infection [Not Recovered/Not Resolved]
  - Fibrous histiocytoma [Recovered/Resolved]
  - Weight decreased [Not Recovered/Not Resolved]
  - Excessive cerumen production [Not Recovered/Not Resolved]

NARRATIVE: CASE EVENT DATE: 20221129
